FAERS Safety Report 8449693-2 (Version None)
Quarter: 2012Q2

REPORT INFORMATION
  Report Type: 
  Country: None (occurrence: None)
  Receive Date: 20120601
  Receipt Date: 20120523
  Transmission Date: 20120825
  Serious: Yes (Other)
  Sender: FDA-Public Use
  Company Number: 2012032338

PATIENT
  Age: 56 Year
  Sex: Female
  Weight: 62.5964 kg

DRUGS (19)
  1. NASONEX [Concomitant]
  2. LEVOTHROID [Concomitant]
  3. CALCIUM [Concomitant]
  4. PROAIR HFA (SALBUTAMOL SULFATE) [Concomitant]
  5. HIZENTRA [Suspect]
     Dosage: SUBCUTANEOUS
     Route: 058
     Dates: start: 20110305
  6. TRAZDONE [Concomitant]
  7. OMEPRAZOLE [Concomitant]
  8. LIDOCAINE/PRILOCAINE (EMLA) [Concomitant]
  9. VITAMIN E [Concomitant]
  10. PREDNISONE TAB [Concomitant]
  11. MORPHINE SULFATE IR (MORPHINE SULFATE) [Concomitant]
  12. LISINOPRIL [Concomitant]
  13. CYMBALTA [Concomitant]
  14. DULERA (MOMETASONE FUROATE) [Concomitant]
  15. METHYLPHENIDATE [Concomitant]
  16. SINGULAIR [Concomitant]
  17. HIZENTRA [Suspect]
     Dosage: 6 G 1X/WEEK, (30 ML) 2-3 SITES OVER 1-2 HOURS, SUBCUTANEOUS)
     Route: 058
     Dates: start: 20120511
  18. HIZENTRA [Suspect]
     Dosage: SUBCUTANEOUS
     Route: 058
  19. MULTIVITAMIN (DAILY MULTIVITAMIN) [Concomitant]

REACTIONS (3)
  - INFUSION SITE SWELLING [None]
  - RESPIRATORY TRACT INFECTION [None]
  - HEADACHE [None]
